FAERS Safety Report 7862482-2 (Version None)
Quarter: 2011Q4

REPORT INFORMATION
  Report Type: 
  Country: None (occurrence: None)
  Receive Date: 20111027
  Receipt Date: 20101102
  Transmission Date: 20120403
  Serious: No
  Sender: FDA-Public Use
  Company Number: US-AMGEN-USASP2010003080

PATIENT
  Age: 56 Year
  Sex: Female

DRUGS (2)
  1. ENBREL [Suspect]
     Indication: RHEUMATOID ARTHRITIS
     Dates: start: 20101028
  2. INFLUENZA VACCIN [Concomitant]
     Dates: start: 20101028, end: 20101028

REACTIONS (7)
  - TREMOR [None]
  - ASTHENIA [None]
  - PRESYNCOPE [None]
  - DIZZINESS [None]
  - HYPERHIDROSIS [None]
  - FATIGUE [None]
  - INJECTION SITE PAIN [None]
